FAERS Safety Report 12507363 (Version 1)
Quarter: 2016Q2

REPORT INFORMATION
  Report Type: Spontaneous
  Country: US (occurrence: None)
  Receive Date: 20160628
  Receipt Date: 20160628
  Transmission Date: 20160815
  Serious: No
  Sender: FDA-Public Use
  Company Number: None

PATIENT
  Age: 56 Year
  Sex: Female
  Weight: 58.97 kg

DRUGS (3)
  1. SYMBICORT [Suspect]
     Active Substance: BUDESONIDE\FORMOTEROL FUMARATE DIHYDRATE
     Indication: LUNG DISORDER
     Dosage: 2 PUFF(S) EVERY 12 HOUORS, INHALATION
     Route: 055
     Dates: start: 20160610, end: 20160614
  2. XANAX [Concomitant]
     Active Substance: ALPRAZOLAM
  3. QVAR [Concomitant]
     Active Substance: BECLOMETHASONE DIPROPIONATE

REACTIONS (4)
  - Dyspnoea [None]
  - Dyspnoea exertional [None]
  - Chest pain [None]
  - Condition aggravated [None]

NARRATIVE: CASE EVENT DATE: 20160610
